FAERS Safety Report 16584417 (Version 1)
Quarter: 2019Q3

REPORT INFORMATION
  Report Type: Spontaneous
  Country: US (occurrence: US)
  Receive Date: 20190604
  Receipt Date: 20190604
  Transmission Date: 20191004
  Serious: Yes (Other)
  Sender: FDA-Public Use
  Company Number: None

PATIENT
  Age: 39 Year
  Sex: Female
  Weight: 94.35 kg

DRUGS (1)
  1. IRBESARTAN AND HYDROCHLOROTHIAZ 150/12.5MG [Suspect]
     Active Substance: HYDROCHLOROTHIAZIDE\IRBESARTAN
     Indication: HYPERTENSION
     Dates: start: 20181010, end: 20190130

REACTIONS (2)
  - Pruritus [None]
  - Rash generalised [None]
